FAERS Safety Report 10879314 (Version 1)
Quarter: 2015Q1

REPORT INFORMATION
  Report Type: Spontaneous
  Country: CA (occurrence: CA)
  Receive Date: 20150302
  Receipt Date: 20150302
  Transmission Date: 20150721
  Serious: Yes (Other)
  Sender: FDA-Public Use
  Company Number: CA-GLAXOSMITHKLINE-CA2015GSK022288

PATIENT
  Sex: Female

DRUGS (1)
  1. BENLYSTA [Suspect]
     Active Substance: BELIMUMAB
     Indication: SYSTEMIC LUPUS ERYTHEMATOSUS
     Dosage: 520 MG, Z, EVERY 4 WEEKS
     Dates: start: 20140428

REACTIONS (6)
  - Complement factor decreased [Unknown]
  - Leukopenia [Unknown]
  - Arthritis [Unknown]
  - Arthralgia [Unknown]
  - Joint swelling [Unknown]
  - Joint effusion [Unknown]
